FAERS Safety Report 18498852 (Version 2)
Quarter: 2020Q4

REPORT INFORMATION
  Report Type: Spontaneous
  Country: US (occurrence: US)
  Receive Date: 20201112
  Receipt Date: 20201125
  Transmission Date: 20210114
  Serious: Yes (Hospitalization)
  Sender: FDA-Public Use
  Company Number: US-TEVA-2020-US-1846444

PATIENT
  Age: 74 Year
  Sex: Male

DRUGS (6)
  1. METHOTREXATE. [Suspect]
     Active Substance: METHOTREXATE
     Indication: RHEUMATOID ARTHRITIS
     Route: 065
  2. LIPOSOMAL AMPHOTERICIN [Suspect]
     Active Substance: AMPHOTERICIN B
     Indication: EMPYEMA
  3. LIPOSOMAL AMPHOTERICIN [Suspect]
     Active Substance: AMPHOTERICIN B
     Indication: ASPERGILLUS INFECTION
     Route: 042
  4. VORICONAZOLE. [Suspect]
     Active Substance: VORICONAZOLE
     Indication: ASPERGILLUS INFECTION
     Route: 042
  5. VORICONAZOLE. [Suspect]
     Active Substance: VORICONAZOLE
     Indication: EMPYEMA
  6. PREDNISONE. [Suspect]
     Active Substance: PREDNISONE
     Indication: RHEUMATOID ARTHRITIS
     Route: 065

REACTIONS (4)
  - Empyema [Unknown]
  - Aspergillus infection [Unknown]
  - Hypotension [Unknown]
  - Liver injury [Unknown]
